FAERS Safety Report 4780232-3 (Version None)
Quarter: 2005Q3

REPORT INFORMATION
  Report Type: 
  Country: None (occurrence: None)
  Receive Date: 20050927
  Receipt Date: 20050915
  Transmission Date: 20060218
  Serious: Yes (Death, Life-Threatening)
  Sender: FDA-Public Use
  Company Number: JP-SANOFI-SYNTHELABO-F01200501890

PATIENT
  Age: 70 Year
  Sex: Male
  Weight: 67 kg

DRUGS (7)
  1. OXALIPLATIN [Suspect]
     Indication: COLON CANCER
     Route: 042
     Dates: start: 20050712, end: 20050727
  2. FLUOROURACIL [Suspect]
     Dosage: 700 MG/BODY=400 MG/M2 IN BOLUS THEN 1050 MG/BODY=600 MG/M2 AS CONTINUOUS INFUSION, D1+2
     Route: 042
     Dates: start: 20050712, end: 20050728
  3. CALCIUM LEVOFOLINATE [Suspect]
     Route: 042
     Dates: start: 20050712, end: 20050728
  4. TRANSFUSION [Concomitant]
     Route: 042
     Dates: start: 20050823, end: 20050823
  5. TRANSFUSION [Concomitant]
     Route: 042
     Dates: start: 20050823, end: 20050823
  6. CEFMETAZON [Concomitant]
     Route: 042
     Dates: start: 20050823, end: 20050823
  7. PRIMPERAN INJ [Concomitant]
     Route: 042
     Dates: start: 20050823, end: 20050823

REACTIONS (7)
  - BLOOD PRESSURE DECREASED [None]
  - CARDIAC ARREST [None]
  - DECREASED APPETITE [None]
  - LEUKOPENIA [None]
  - NEUTROPENIA [None]
  - STOMATITIS [None]
  - WEIGHT DECREASED [None]
